FAERS Safety Report 14556281 (Version 3)
Quarter: 2018Q1

REPORT INFORMATION
  Report Type: Spontaneous
  Country: DE (occurrence: DE)
  Receive Date: 20180221
  Receipt Date: 20180312
  Transmission Date: 20180509
  Serious: Yes (Other)
  Sender: FDA-Public Use
  Company Number: DE-MERCK KGAA-2042369

PATIENT
  Sex: Male

DRUGS (13)
  1. GLIMEPIRID [Suspect]
     Active Substance: GLIMEPIRIDE
     Route: 065
  2. ACETYLSALICYLIC ACID [Suspect]
     Active Substance: ASPIRIN
     Route: 065
  3. MIFLONIDE [Suspect]
     Active Substance: BUDESONIDE
     Route: 065
  4. CANDESARTAN+HYDROCHLOROTHIAZIDE(BLOPRESS PLUS) [Suspect]
     Active Substance: CANDESARTAN CILEXETIL\HYDROCHLOROTHIAZIDE
     Route: 065
  5. NOVOTHYROX [Suspect]
     Active Substance: LEVOTHYROXINE SODIUM
     Indication: PRODUCT USED FOR UNKNOWN INDICATION
     Route: 065
  6. BISOPROLOL [Suspect]
     Active Substance: BISOPROLOL
     Route: 065
  7. SPIRONOLACTON HEXAL [Suspect]
     Active Substance: SPIRONOLACTONE
     Route: 065
  8. FORADIL [Suspect]
     Active Substance: FORMOTEROL FUMARATE
     Route: 065
  9. PANTOPRAZOL NYC [Suspect]
     Active Substance: PANTOPRAZOLE SODIUM
     Route: 065
  10. SPIRONOLACTON HEXAL [Suspect]
     Active Substance: SPIRONOLACTONE
  11. SIMVA [Suspect]
     Active Substance: SIMVASTATIN
     Route: 065
  12. PANTOPRAZOL NYC [Suspect]
     Active Substance: PANTOPRAZOLE SODIUM
     Route: 065
  13. SPIRIVA [Suspect]
     Active Substance: TIOTROPIUM BROMIDE MONOHYDRATE
     Route: 065

REACTIONS (2)
  - Blood glucose increased [Unknown]
  - Drug interaction [Unknown]
